FAERS Safety Report 19484015 (Version 1)
Quarter: 2021Q3

REPORT INFORMATION
  Report Type: Spontaneous
  Country: FR (occurrence: FR)
  Receive Date: 20210701
  Receipt Date: 20210701
  Transmission Date: 20211014
  Serious: Yes (Other)
  Sender: FDA-Public Use
  Company Number: NVSC2021FR141481

PATIENT
  Age: 4 Year
  Sex: Male

DRUGS (9)
  1. CYTARABINE. [Suspect]
     Active Substance: CYTARABINE
     Indication: T-CELL TYPE ACUTE LEUKAEMIA
     Dosage: 30 MG,CYCLIC
     Route: 037
     Dates: start: 20210310, end: 20210314
  2. BACTRIM [Suspect]
     Active Substance: SULFAMETHOXAZOLE\TRIMETHOPRIM
     Indication: PROPHYLAXIS
     Dosage: 600 MG, TIW
     Route: 048
     Dates: start: 20210312, end: 20210331
  3. CERUBIDINE [Suspect]
     Active Substance: DAUNORUBICIN HYDROCHLORIDE
     Indication: T-CELL TYPE ACUTE LEUKAEMIA
     Dosage: 23.5 MG,CYCLIC
     Route: 042
     Dates: start: 20210309, end: 20210323
  4. METHOTREXATE BIODIM [Suspect]
     Active Substance: METHOTREXATE
     Indication: T-CELL TYPE ACUTE LEUKAEMIA
     Dosage: 12 MG, CYCLIC
     Route: 037
     Dates: start: 20210310, end: 20210331
  5. GLIVEC [Suspect]
     Active Substance: IMATINIB MESYLATE
     Indication: T-CELL TYPE ACUTE LEUKAEMIA
     Dosage: 3.5 DF,QD
     Route: 048
     Dates: start: 20210306, end: 20210401
  6. HYDROCORTISONE UPJOHN [Suspect]
     Active Substance: HYDROCORTISONE
     Indication: T-CELL TYPE ACUTE LEUKAEMIA
     Dosage: 15 MG, CYCLIC
     Route: 037
     Dates: start: 20210310, end: 20210314
  7. VINCRISTINE HOSPIRA [Suspect]
     Active Substance: VINCRISTINE
     Indication: T-CELL TYPE ACUTE LEUKAEMIA
     Dosage: 1.4 MG, CYCLIC
     Route: 042
     Dates: start: 20210309, end: 20210330
  8. ONCASPAR [Suspect]
     Active Substance: PEGASPARGASE
     Indication: T-CELL TYPE ACUTE LEUKAEMIA
     Dosage: 2400 IU (TOTAL)
     Route: 042
     Dates: start: 20210313, end: 20210313
  9. ENDOXAN [Suspect]
     Active Substance: CYCLOPHOSPHAMIDE
     Indication: T-CELL TYPE ACUTE LEUKAEMIA
     Dosage: 950 MG (1 TOTAL)
     Route: 042
     Dates: start: 20210310, end: 20210310

REACTIONS (2)
  - Hepatic cytolysis [Recovered/Resolved]
  - Hepatitis cholestatic [Recovering/Resolving]
